FAERS Safety Report 8755864 (Version 2)
Quarter: 2013Q3

REPORT INFORMATION
  Report Type: Spontaneous
  Country: US (occurrence: US)
  Receive Date: 20120827
  Receipt Date: 20130812
  Transmission Date: 20140515
  Serious: Yes (Hospitalization, Other)
  Sender: FDA-Public Use
  Company Number: US-009507513-1204USA04555

PATIENT
  Sex: Female
  Weight: 95.71 kg

DRUGS (11)
  1. FOSAMAX [Suspect]
     Indication: LUNG TRANSPLANT
     Dosage: 70 MG, UNK
     Route: 048
     Dates: start: 200410
  2. FOSAMAX [Suspect]
     Dosage: 35 MG, UNK
     Route: 048
     Dates: start: 200801
  3. PRILOSEC [Concomitant]
     Dosage: TO PRESENT
     Dates: start: 200407
  4. METICORTEN [Concomitant]
     Indication: IMMUNOSUPPRESSION
     Dosage: TO PRESENT
     Dates: start: 200407
  5. AMLODIPINE [Concomitant]
     Indication: HYPERTENSION
     Dosage: TO PRESENT
     Route: 048
     Dates: start: 200407
  6. SIMVASTATIN [Concomitant]
     Indication: HYPERLIPIDAEMIA
     Dosage: TO PRESENT
     Route: 048
     Dates: start: 200407
  7. LOSARTAN POTASSIUM TABLETS [Concomitant]
     Indication: HYPERTENSION
     Dosage: TO PRESENT
     Route: 048
     Dates: start: 200407
  8. FOSAMAX [Suspect]
     Indication: OSTEOPOROSIS
     Route: 048
  9. FOSAMAX [Suspect]
     Dosage: 35 MG, QW
     Route: 048
  10. BENICAR [Concomitant]
     Dosage: 20 MG, QD
     Dates: start: 200407
  11. PREDNISONE [Concomitant]
     Indication: LUNG TRANSPLANT

REACTIONS (36)
  - Intramedullary rod insertion [Unknown]
  - Renal failure chronic [Not Recovered/Not Resolved]
  - Pathological fracture [Unknown]
  - Renal failure acute [Unknown]
  - Renal failure acute [Recovered/Resolved]
  - Renal failure acute [Unknown]
  - Renal failure [Unknown]
  - Dehydration [Unknown]
  - Femur fracture [Recovered/Resolved with Sequelae]
  - Femur fracture [Unknown]
  - Diarrhoea [Recovered/Resolved]
  - Impaired healing [Recovering/Resolving]
  - Stress fracture [Unknown]
  - Depression [Unknown]
  - Sinusitis [Unknown]
  - Restless legs syndrome [Unknown]
  - Pneumonia [Unknown]
  - Cardiac murmur [Unknown]
  - Somnolence [Unknown]
  - Pulmonary fibrosis [Unknown]
  - Complications of transplanted lung [Unknown]
  - Acrochordon [Unknown]
  - Pleural effusion [Unknown]
  - Thyroid disorder [Unknown]
  - Decreased appetite [Unknown]
  - Insomnia [Unknown]
  - Drug level above therapeutic [Unknown]
  - Cough [Unknown]
  - Breath sounds abnormal [Unknown]
  - Mammogram abnormal [Unknown]
  - Bursitis [Unknown]
  - Nausea [Recovered/Resolved]
  - Headache [Recovered/Resolved]
  - Pain in jaw [Unknown]
  - Gastrooesophageal reflux disease [Unknown]
  - Off label use [Unknown]
